FAERS Safety Report 10066060 (Version 1)
Quarter: 2014Q1

REPORT INFORMATION
  Report Type: Spontaneous
  Country: US (occurrence: None)
  Receive Date: 20140328
  Receipt Date: 20140328
  Transmission Date: 20141002
  Serious: No
  Sender: FDA-Public Use
  Company Number: 1000051839

PATIENT
  Age: 77 Year
  Sex: Male

DRUGS (3)
  1. LINZESS (LINACLOTIDE) (290 MICROGRAM, CAPSULES) [Suspect]
     Indication: IRRITABLE BOWEL SYNDROME
     Route: 048
     Dates: start: 201311, end: 201402
  2. LINZESS (LINACLOTIDE) (145 MICROGRAM, CAPSULES) [Suspect]
     Indication: IRRITABLE BOWEL SYNDROME
     Dosage: 290 UG (145 UG,2 IN 1 D)
     Route: 048
     Dates: start: 201402, end: 201402
  3. VITAMINS NOS [Concomitant]

REACTIONS (2)
  - Drug ineffective [None]
  - Diarrhoea [None]
